FAERS Safety Report 9752708 (Version 1)
Quarter: 2013Q4

REPORT INFORMATION
  Report Type: Spontaneous
  Country: US (occurrence: None)
  Receive Date: 20131212
  Receipt Date: 20131212
  Transmission Date: 20140711
  Serious: Yes (Other)
  Sender: FDA-Public Use
  Company Number: None

PATIENT
  Age: 82 Year
  Sex: Female
  Weight: 52.16 kg

DRUGS (11)
  1. JANUVIA [Suspect]
     Indication: DIABETES MELLITUS INADEQUATE CONTROL
     Dosage: OCT 12?NOV 26
     Route: 048
  2. VESICAR [Concomitant]
  3. ACTOS [Concomitant]
  4. CRESTOR [Concomitant]
  5. BENICAR [Concomitant]
  6. ACTONEL [Concomitant]
  7. VIT C+D [Concomitant]
  8. CALCIUM [Concomitant]
  9. GLUCOSAMINE [Concomitant]
  10. SULFATE [Concomitant]
  11. ASPIRIN [Concomitant]

REACTIONS (6)
  - Arthralgia [None]
  - Lip blister [None]
  - Oral mucosal blistering [None]
  - Swelling [None]
  - Erythema [None]
  - Blister [None]
